FAERS Safety Report 9106545 (Version 2)
Quarter: 2013Q2

REPORT INFORMATION
  Report Type: Spontaneous
  Country: US (occurrence: US)
  Receive Date: 20130222
  Receipt Date: 20130430
  Transmission Date: 20140414
  Serious: No
  Sender: FDA-Public Use
  Company Number: US-009507513-1302USA007654

PATIENT
  Sex: Female
  Weight: 90.25 kg

DRUGS (4)
  1. LOSARTAN POTASSIUM [Suspect]
     Indication: DIABETES MELLITUS
     Route: 048
  2. LOSARTAN POTASSIUM [Suspect]
     Indication: HYPERTENSION
  3. COZAAR [Suspect]
     Indication: DIABETES MELLITUS
     Dosage: UNK
     Route: 048
     Dates: start: 200802
  4. COZAAR [Suspect]
     Indication: HYPERTENSION

REACTIONS (2)
  - Nausea [Recovered/Resolved]
  - Dizziness [Recovered/Resolved]
